FAERS Safety Report 4381939-2 (Version None)
Quarter: 2004Q2

REPORT INFORMATION
  Report Type: 
  Country: None (occurrence: None)
  Receive Date: 20040615
  Receipt Date: 20040602
  Transmission Date: 20050107
  Serious: No
  Sender: FDA-Public Use
  Company Number: 04P-167-0262916-00

PATIENT
  Age: 71 Year
  Sex: Male

DRUGS (1)
  1. ISOPTIN [Suspect]
     Indication: CLUSTER HEADACHE
     Dosage: 240 MG, 1 IN 1 D, PER ORAL
     Route: 048
     Dates: start: 20011119

REACTIONS (6)
  - ANGIOCENTRIC LYMPHOMA [None]
  - ATROPHY [None]
  - LYMPHOMATOID PAPULOSIS [None]
  - RASH ERYTHEMATOUS [None]
  - RASH PRURITIC [None]
  - SCAR [None]
